FAERS Safety Report 16916749 (Version 2)
Quarter: 2020Q1

REPORT INFORMATION
  Report Type: Spontaneous
  Country: DE (occurrence: DE)
  Receive Date: 20191015
  Receipt Date: 20200110
  Transmission Date: 20200409
  Serious: No
  Sender: FDA-Public Use
  Company Number: DE-HORMOSAN PHARMA GMBH-2019-05432

PATIENT
  Age: 69 Year
  Sex: Male

DRUGS (4)
  1. SILDENAFIL-HORMOSAN 100 MG FILMTABLETTEN [Suspect]
     Active Substance: SILDENAFIL CITRATE
     Dosage: 100 MILLIGRAM
     Route: 048
     Dates: start: 20190813
  2. PRADAXA [Concomitant]
     Active Substance: DABIGATRAN ETEXILATE MESYLATE
     Indication: PRODUCT USED FOR UNKNOWN INDICATION
     Dosage: 150 MILLIGRAM, BID
     Route: 065
  3. FLECAINIDE ACETATE. [Concomitant]
     Active Substance: FLECAINIDE ACETATE
     Indication: PRODUCT USED FOR UNKNOWN INDICATION
     Dosage: 100 MILLIGRAM
     Route: 065
  4. SILDENAFIL-HORMOSAN 100 MG FILMTABLETTEN [Suspect]
     Active Substance: SILDENAFIL CITRATE
     Indication: ERECTILE DYSFUNCTION
     Dosage: 0.5 DOSAGE FORM (HALF TABLET)
     Route: 048
     Dates: start: 201811

REACTIONS (6)
  - Lacrimation increased [Recovered/Resolved]
  - Nasal congestion [Recovered/Resolved]
  - Drug ineffective [Unknown]
  - Sneezing [Recovered/Resolved]
  - Wrong technique in product usage process [Unknown]
  - Rhinorrhoea [Recovered/Resolved]

NARRATIVE: CASE EVENT DATE: 20190815
